FAERS Safety Report 25664430 (Version 1)
Quarter: 2025Q3

REPORT INFORMATION
  Report Type: Spontaneous
  Country: GB (occurrence: GB)
  Receive Date: 20250811
  Receipt Date: 20250811
  Transmission Date: 20251020
  Serious: Yes (Hospitalization, Disabling, Other)
  Sender: BAYER HEALTHCARE PHARMACEUTICALS INC.
  Company Number: None

PATIENT
  Age: 27 Year
  Sex: Male
  Weight: 73 kg

DRUGS (1)
  1. CIPROFLOXACIN [Suspect]
     Active Substance: CIPROFLOXACIN
     Indication: Prostatitis
     Dates: start: 20230311, end: 20230317

REACTIONS (6)
  - Medication error [Unknown]
  - Asthenia [Not Recovered/Not Resolved]
  - Depression suicidal [None]
  - Gait disturbance [None]
  - Pain in extremity [None]
  - Muscle atrophy [None]

NARRATIVE: CASE EVENT DATE: 20230311
